FAERS Safety Report 8651253 (Version 2)
Quarter: 2012Q4

REPORT INFORMATION
  Report Type: 
  Country: JP (occurrence: JP)
  Receive Date: 20120705
  Receipt Date: 20120912
  Transmission Date: 20130627
  Serious: Yes (Life-Threatening, Hospitalization)
  Sender: FDA-Public Use
  Company Number: JP-SANOFI-AVENTIS-2012SA047080

PATIENT
  Age: 70 Year
  Sex: Female
  Weight: 48.8 kg

DRUGS (3)
  1. LANTUS [Suspect]
     Indication: TYPE I DIABETES MELLITUS
     Dosage: Dose:20 unit(s)
     Route: 058
     Dates: start: 20081208, end: 20111206
  2. INSULIN DETEMIR [Concomitant]
     Indication: TYPE I DIABETES MELLITUS
     Dosage: Dose:10 unit(s)
     Route: 058
     Dates: start: 20111207
  3. INSULIN HUMAN [Concomitant]
     Indication: TYPE I DIABETES MELLITUS
     Dosage: Dose:17 unit(s)
     Route: 058
     Dates: start: 20060315

REACTIONS (1)
  - Breast cancer [Recovering/Resolving]
